FAERS Safety Report 23021131 (Version 1)
Quarter: 2023Q4

REPORT INFORMATION
  Report Type: Spontaneous
  Country: JP (occurrence: JP)
  Receive Date: 20231003
  Receipt Date: 20231003
  Transmission Date: 20240110
  Serious: Yes (Other)
  Sender: FDA-Public Use
  Company Number: JP-BAYER-2023A133690

PATIENT
  Age: 57 Year
  Sex: Male

DRUGS (6)
  1. KERENDIA [Suspect]
     Active Substance: FINERENONE
     Indication: Diabetic nephropathy
     Dosage: DAILY DOSE 10 MG
     Dates: start: 202307, end: 202308
  2. MICARDIS [Concomitant]
     Active Substance: TELMISARTAN
     Indication: Hypertension
  3. LIVALO [Concomitant]
     Active Substance: PITAVASTATIN CALCIUM
  4. IPRAGLIFLOZIN L-PROLINE [Concomitant]
     Active Substance: IPRAGLIFLOZIN L-PROLINE
  5. SITAGLIPTIN [Concomitant]
     Active Substance: SITAGLIPTIN
  6. METGLUCO [Concomitant]
     Active Substance: METFORMIN HYDROCHLORIDE

REACTIONS (2)
  - Subacute kidney injury [Not Recovered/Not Resolved]
  - Dehydration [None]
